FAERS Safety Report 6910525-2 (Version None)
Quarter: 2010Q3

REPORT INFORMATION
  Report Type: 
  Country: None (occurrence: None)
  Receive Date: 20100806
  Receipt Date: 20100803
  Transmission Date: 20110219
  Serious: Yes (Death)
  Sender: FDA-Public Use
  Company Number: PHHY2010US49043

PATIENT
  Sex: Female

DRUGS (9)
  1. RECLAST [Suspect]
     Dosage: UNK
     Dates: start: 20100122
  2. POTASSIUM [Concomitant]
  3. SYNTHROID [Concomitant]
  4. SPIRONOLACTONE [Concomitant]
  5. SERTRALINE HYDROCHLORIDE [Concomitant]
  6. DIAZEPAM [Concomitant]
  7. CLONAZEPAM [Concomitant]
  8. DILAUDID [Concomitant]
  9. METHADONE HCL [Concomitant]

REACTIONS (1)
  - DEATH [None]
